FAERS Safety Report 22314990 (Version 1)
Quarter: 2023Q2

REPORT INFORMATION
  Report Type: Spontaneous
  Country: FR (occurrence: FR)
  Receive Date: 20230512
  Receipt Date: 20230512
  Transmission Date: 20230722
  Serious: Yes (Hospitalization)
  Sender: FDA-Public Use
  Company Number: None

PATIENT
  Age: 36 Year
  Sex: Female
  Weight: 64.5 kg

DRUGS (3)
  1. ORGALUTRAN [Suspect]
     Active Substance: GANIRELIX ACETATE
     Indication: Controlled ovarian stimulation
     Dosage: 1 DOSAGE FORM, QOD (STRENGTH: 0.25 MG/0.5 ML)
     Route: 058
     Dates: start: 20230317, end: 20230320
  2. FOLLITROPIN ALFA [Suspect]
     Active Substance: FOLLITROPIN ALFA
     Indication: Controlled ovarian stimulation
     Dosage: 1 DOSAGE FORM, QOD (STRENGTH: 225 IU/0.375 ML)
     Route: 058
     Dates: start: 20230313, end: 20230320
  3. ESTRADIOL [Suspect]
     Active Substance: ESTRADIOL
     Indication: Controlled ovarian stimulation
     Dosage: 2 MG X TWICE A DAY
     Route: 048
     Dates: start: 20230307, end: 20230312

REACTIONS (1)
  - Acute myocardial infarction [Recovered/Resolved with Sequelae]

NARRATIVE: CASE EVENT DATE: 20230321
